FAERS Safety Report 18324802 (Version 1)
Quarter: 2020Q3

REPORT INFORMATION
  Report Type: Spontaneous
  Country: US (occurrence: US)
  Receive Date: 20200929
  Receipt Date: 20200929
  Transmission Date: 20201103
  Serious: Yes (Death)
  Sender: FDA-Public Use
  Company Number: None

PATIENT
  Age: 62 Year
  Sex: Male

DRUGS (1)
  1. ZOLADEX [Suspect]
     Active Substance: GOSERELIN ACETATE
     Indication: PROSTATE CANCER
     Dosage: ?          OTHER ROUTE:TO BE ADMINISTERED BY PHYSICIAN?
     Dates: start: 20181125, end: 20200902

REACTIONS (1)
  - Death [None]

NARRATIVE: CASE EVENT DATE: 20200902
